FAERS Safety Report 8615938-9 (Version None)
Quarter: 2012Q3

REPORT INFORMATION
  Report Type: 
  Country: None (occurrence: None)
  Receive Date: 20120823
  Receipt Date: 20120820
  Transmission Date: 20120928
  Serious: Yes (Other)
  Sender: FDA-Public Use
  Company Number: GB-GLAXOSMITHKLINE-B0823886A

PATIENT
  Age: 55 Year
  Sex: Female
  Weight: 61 kg

DRUGS (1)
  1. PAROXETINE HCL [Suspect]
     Indication: DEPRESSION
     Dosage: 20MG PER DAY
     Route: 065
     Dates: start: 19940101

REACTIONS (4)
  - TREMOR [None]
  - MALAISE [None]
  - SNEEZING [None]
  - DYSKINESIA [None]
